FAERS Safety Report 25617666 (Version 1)
Quarter: 2025Q3

REPORT INFORMATION
  Report Type: Spontaneous
  Country: US (occurrence: US)
  Receive Date: 20250729
  Receipt Date: 20250729
  Transmission Date: 20251020
  Serious: Yes (Hospitalization, Other)
  Sender: AMGEN
  Company Number: US-AMGEN-USASP2025144031

PATIENT
  Age: 77 Year
  Sex: Female

DRUGS (1)
  1. RITUXIMAB [Suspect]
     Active Substance: RITUXIMAB
     Indication: Dermatomyositis
     Route: 065

REACTIONS (8)
  - Cardiomyopathy [Unknown]
  - Myopericarditis [Unknown]
  - Panniculitis [Unknown]
  - Renal impairment [Unknown]
  - Hypertransaminasaemia [Unknown]
  - Peripheral venous disease [Unknown]
  - Cellulitis [Unknown]
  - Off label use [Unknown]
